FAERS Safety Report 9902704 (Version 9)
Quarter: 2014Q2

REPORT INFORMATION
  Report Type: Spontaneous
  Country: US (occurrence: US)
  Receive Date: 20140217
  Receipt Date: 20140421
  Transmission Date: 20141212
  Serious: Yes (Other)
  Sender: FDA-Public Use
  Company Number: US-JNJFOC-20140207838

PATIENT
  Age: 41 Year
  Sex: Male
  Weight: 80.74 kg

DRUGS (1)
  1. REMICADE [Suspect]
     Indication: CROHN^S DISEASE
     Dosage: REPORTED AS DISCONTINUED 4 MONTHS AGO
     Route: 042
     Dates: end: 2013

REACTIONS (1)
  - White blood cell count decreased [Not Recovered/Not Resolved]
